FAERS Safety Report 10649919 (Version 4)
Quarter: 2015Q1

REPORT INFORMATION
  Report Type: Spontaneous
  Country: US (occurrence: US)
  Receive Date: 20141212
  Receipt Date: 20150106
  Transmission Date: 20150720
  Serious: Yes (Hospitalization, Other)
  Sender: FDA-Public Use
  Company Number: US-UNITED THERAPEUTICS-UNT-2014-011923

PATIENT
  Age: 49 Year
  Sex: Female
  Weight: 93.42 kg

DRUGS (11)
  1. REVATIO [Concomitant]
     Active Substance: SILDENAFIL CITRATE
     Indication: PULMONARY ARTERIAL HYPERTENSION
     Dosage: 20 MG, TID
     Route: 048
  2. REMODULIN [Suspect]
     Active Substance: TREPROSTINIL
     Dosage: 0.072 ?G/KG, CONTINUING
     Route: 058
     Dates: start: 20091209
  3. ONDANSETRON [Concomitant]
     Active Substance: ONDANSETRON
     Indication: PRODUCT USED FOR UNKNOWN INDICATION
     Dosage: 4 MG, Q8H, PRN
     Route: 048
  4. PERCOCET [Concomitant]
     Active Substance: ACETAMINOPHEN\OXYCODONE HYDROCHLORIDE
     Indication: PRODUCT USED FOR UNKNOWN INDICATION
     Dosage: 1 TAB EVERY 6 HOURS PRN
     Route: 048
  5. FUROSEMIDE. [Concomitant]
     Active Substance: FUROSEMIDE
     Indication: PRODUCT USED FOR UNKNOWN INDICATION
     Dosage: 120 MG, QD
     Route: 048
  6. POTASSIUM CHLORIDE. [Concomitant]
     Active Substance: POTASSIUM CHLORIDE
     Indication: PRODUCT USED FOR UNKNOWN INDICATION
     Dosage: 20 MEQ, EXTENDED RELEASE, QD
     Route: 048
  7. REMODULIN [Suspect]
     Active Substance: TREPROSTINIL
     Indication: PULMONARY ARTERIAL HYPERTENSION
     Dosage: 0.072 ?G/KG, CONTINUING
     Route: 058
     Dates: start: 20091209
  8. ALDACTONE [Concomitant]
     Active Substance: SPIRONOLACTONE
     Indication: PRODUCT USED FOR UNKNOWN INDICATION
     Dosage: 25 MG, BID
     Route: 048
  9. OXYGEN. [Concomitant]
     Active Substance: OXYGEN
     Indication: PULMONARY ARTERIAL HYPERTENSION
     Dosage: 3 TO 6 LPM VIA NASAL CANULA
  10. COUMADIN [Concomitant]
     Active Substance: WARFARIN SODIUM
     Indication: PULMONARY ARTERIAL HYPERTENSION
     Dosage: 11 MG, QD
     Route: 048
  11. LETAIRIS [Concomitant]
     Active Substance: AMBRISENTAN
     Indication: PULMONARY ARTERIAL HYPERTENSION
     Dosage: 5 MG, DAILY
     Route: 048

REACTIONS (23)
  - Dyspnoea [Recovered/Resolved]
  - Myalgia [Unknown]
  - Upper respiratory tract infection [Unknown]
  - Oxygen consumption increased [Unknown]
  - Pulmonary congestion [Recovered/Resolved]
  - Cardiac failure [Unknown]
  - Pain [Recovered/Resolved]
  - Arthralgia [Unknown]
  - Haemoptysis [Recovered/Resolved]
  - Diarrhoea [Unknown]
  - International normalised ratio increased [Unknown]
  - Chest pain [Unknown]
  - Productive cough [Recovered/Resolved]
  - Chills [Recovered/Resolved]
  - Pyrexia [Recovered/Resolved]
  - Cardiomegaly [Not Recovered/Not Resolved]
  - Dizziness [Recovered/Resolved]
  - Paranasal sinus hypersecretion [Recovered/Resolved]
  - Malaise [Unknown]
  - Headache [Recovered/Resolved]
  - Nausea [Unknown]
  - Early satiety [Not Recovered/Not Resolved]
  - Tachycardia [Unknown]

NARRATIVE: CASE EVENT DATE: 2014
